FAERS Safety Report 5153744-0 (Version None)
Quarter: 2006Q4

REPORT INFORMATION
  Report Type: 
  Country: None (occurrence: None)
  Receive Date: 20061120
  Receipt Date: 20060629
  Transmission Date: 20070319
  Serious: Yes (Death, Hospitalization)
  Sender: FDA-Public Use
  Company Number: US-ELI_LILLY_AND_COMPANY-US200607000751

PATIENT
  Age: 47 Year
  Sex: Female
  Weight: 49.886 kg

DRUGS (3)
  1. ZYPREXA [Suspect]
     Dosage: 7.5 MG, UNK
     Dates: start: 20020101, end: 20021201
  2. BUPROPION HCL [Concomitant]
     Dates: start: 20020101
  3. INSULIN [Concomitant]
     Dates: start: 19800101, end: 20020101

REACTIONS (4)
  - DEATH [None]
  - DIABETIC KETOACIDOSIS [None]
  - KETONURIA [None]
  - WEIGHT DECREASED [None]
